FAERS Safety Report 5961087-8 (Version None)
Quarter: 2008Q4

REPORT INFORMATION
  Report Type: 
  Country: None (occurrence: None)
  Receive Date: 20081119
  Receipt Date: 20081111
  Transmission Date: 20090506
  Serious: Yes (Other)
  Sender: FDA-Public Use
  Company Number: CHPA2008US19399

PATIENT
  Age: 71 Year
  Sex: Female
  Weight: 78.5 kg

DRUGS (8)
  1. VOLTAREN [Suspect]
  2. LANOXIN (LANOXIN) [Concomitant]
  3. ZETIA [Concomitant]
  4. TERAZOSIN HCL [Concomitant]
  5. HYDROCODONE (HYDROCODONE) [Concomitant]
  6. DILTIAZEM [Concomitant]
  7. SINGULAIR [Concomitant]
  8. COUMADIN [Concomitant]

REACTIONS (2)
  - ARRHYTHMIA [None]
  - TACHYCARDIA [None]
